FAERS Safety Report 25702649 (Version 1)
Quarter: 2025Q3

REPORT INFORMATION
  Report Type: Spontaneous
  Country: US (occurrence: US)
  Receive Date: 20250819
  Receipt Date: 20250819
  Transmission Date: 20251021
  Serious: No
  Sender: REGENERON
  Company Number: US-REGENERON PHARMACEUTICALS, INC.-2025-087187

PATIENT
  Sex: Female

DRUGS (2)
  1. PRALUENT [Suspect]
     Active Substance: ALIROCUMAB
     Indication: Blood cholesterol increased
     Dosage: 150 MG, Q2W (EVERY OTHER WEEK)
     Route: 058
  2. PRALUENT [Suspect]
     Active Substance: ALIROCUMAB
     Dosage: 75MG, Q2W (EVERY OTHER WEEK)
     Route: 058
     Dates: end: 202505

REACTIONS (7)
  - Musculoskeletal stiffness [Unknown]
  - Malaise [Unknown]
  - Pain [Unknown]
  - Gastrointestinal disorder [Unknown]
  - Asthenia [Unknown]
  - Influenza like illness [Unknown]
  - Myalgia [Unknown]
